FAERS Safety Report 24286704 (Version 1)
Quarter: 2024Q3

REPORT INFORMATION
  Report Type: Spontaneous
  Country: US (occurrence: US)
  Receive Date: 20240905
  Receipt Date: 20240905
  Transmission Date: 20241017
  Serious: No
  Sender: PFIZER
  Company Number: US-PFIZER INC-PV202400115664

PATIENT
  Age: 58 Year

DRUGS (4)
  1. CIBINQO [Suspect]
     Active Substance: ABROCITINIB
     Dosage: 1 TABLET DAILY
     Route: 048
  2. CIBINQO [Suspect]
     Active Substance: ABROCITINIB
     Dosage: MEDICATION TAKEN 2-3 TIMES PER WEEK
  3. OMEPRAZOLE [Concomitant]
     Active Substance: OMEPRAZOLE
  4. NP THYROID [Concomitant]
     Active Substance: LEVOTHYROXINE\LIOTHYRONINE

REACTIONS (2)
  - Mouth ulceration [Not Recovered/Not Resolved]
  - Intentional product misuse [Unknown]
